FAERS Safety Report 4628913-6 (Version None)
Quarter: 2005Q2

REPORT INFORMATION
  Report Type: 
  Country: None (occurrence: None)
  Receive Date: 20050406
  Receipt Date: 20050323
  Transmission Date: 20051028
  Serious: Yes (Hospitalization, Other)
  Sender: FDA-Public Use
  Company Number: 2005048851

PATIENT
  Sex: Female

DRUGS (3)
  1. DETROL LA [Suspect]
     Indication: ILL-DEFINED DISORDER
     Dosage: ORAL
     Route: 048
  2. ESOMEPRAZOLE (ESOMEPRAZOLE) [Concomitant]
  3. OMEPRAZOLE [Concomitant]

REACTIONS (1)
  - CORONARY ARTERIAL STENT INSERTION [None]
